FAERS Safety Report 18123058 (Version 2)
Quarter: 2020Q4

REPORT INFORMATION
  Report Type: Report from Study
  Country: IE (occurrence: IE)
  Receive Date: 20200807
  Receipt Date: 20201030
  Transmission Date: 20210113
  Serious: Yes (Hospitalization)
  Sender: FDA-Public Use
  Company Number: IE-EMD SERONO-9178042

PATIENT
  Sex: Male

DRUGS (4)
  1. MAVENCLAD [Suspect]
     Active Substance: CLADRIBINE
     Dosage: YEAR ONE WEEK TWO THERAPY: TWO DOSAGE FORMS ON DAYS 1 TO 3, ONE DOSAGE FORM ON DAYS 4 AND 5
     Route: 048
     Dates: start: 20190218
  2. MAVENCLAD [Suspect]
     Active Substance: CLADRIBINE
     Dosage: YEAR TWO WEEK ONE THERAPY: TWO DOSAGE FORMS ON DAYS 1 TO 3, ONE DOSAGE FORM ON DAYS 4 AND 5
     Route: 048
     Dates: start: 20200127
  3. MAVENCLAD [Suspect]
     Active Substance: CLADRIBINE
     Indication: RELAPSING-REMITTING MULTIPLE SCLEROSIS
     Dosage: YEAR ONE WEEK ONE THERAPY: TWO DOSAGE FORMS ON DAYS 1 TO 3, ONE DOSAGE FORM ON DAYS 4 AND 5
     Route: 048
     Dates: start: 20190121
  4. MAVENCLAD [Suspect]
     Active Substance: CLADRIBINE
     Dosage: YEAR TWO WEEK TWO THERAPY: TWO DOSAGE FORMS ON DAYS 1 TO 3, ONE DOSAGE FORM ON DAYS 4 AND 5
     Route: 048
     Dates: start: 20200224

REACTIONS (1)
  - Nephrolithiasis [Recovered/Resolved]
